FAERS Safety Report 7939404-9 (Version None)
Quarter: 2011Q4

REPORT INFORMATION
  Report Type: 
  Country: None (occurrence: None)
  Receive Date: 20111125
  Receipt Date: 20111117
  Transmission Date: 20120403
  Serious: Yes (Other)
  Sender: FDA-Public Use
  Company Number: FI-ROCHE-781437

PATIENT
  Age: 72 Year
  Sex: Female

DRUGS (4)
  1. TREXAN (FINLAND) [Concomitant]
  2. SULFASALAZINE [Suspect]
     Indication: RHEUMATOID ARTHRITIS
  3. PREDNISOLONE [Concomitant]
     Route: 048
  4. MABTHERA [Suspect]
     Indication: PRODUCT USED FOR UNKNOWN INDICATION
     Dosage: FREQ:  CYCLES OF TWO INFUSIONS (2 X 1000 MG) (NOS)
     Route: 042
     Dates: start: 20101207, end: 20110608

REACTIONS (4)
  - EAR INFECTION [None]
  - MUCOSAL DRYNESS [None]
  - ANOSMIA [None]
  - OTOSCLEROSIS [None]
